FAERS Safety Report 23325622 (Version 11)
Quarter: 2024Q4

REPORT INFORMATION
  Report Type: Report from Study
  Country: JP (occurrence: JP)
  Receive Date: 20231221
  Receipt Date: 20241225
  Transmission Date: 20250115
  Serious: Yes (Death, Hospitalization, Disabling, Other)
  Sender: ABBVIE
  Company Number: JP-TAKEDA-2023TJP016821

PATIENT
  Age: 55 Year
  Sex: Male
  Weight: 58 kg

DRUGS (21)
  1. LEUPROLIDE ACETATE [Suspect]
     Active Substance: LEUPROLIDE ACETATE
     Indication: Bulbospinal muscular atrophy congenital
     Dosage: 1.25 MILLIGRAM, Q3MONTHS
     Route: 058
     Dates: start: 20171004, end: 20230922
  2. CERCINE [Concomitant]
     Active Substance: DIAZEPAM
     Indication: Muscle spasms
     Dosage: FORM STRENGTH: 6 MILLIGRAM
     Route: 065
     Dates: end: 20200603
  3. FELBINAC [Concomitant]
     Active Substance: FELBINAC
     Indication: Bulbospinal muscular atrophy congenital
     Dosage: FORM STRENGTH: 50 MILLILITER
     Route: 065
     Dates: end: 20230803
  4. LYRICA [Concomitant]
     Active Substance: PREGABALIN
     Indication: Back pain
     Dosage: FORM STRENGTH: 75 MILLIGRAM
     Route: 048
     Dates: start: 20170510
  5. LYRICA [Concomitant]
     Active Substance: PREGABALIN
     Indication: Back pain
     Dosage: FORM STRENGTH:25 MILLIGRAM, BID
     Route: 048
     Dates: start: 20220203, end: 20230601
  6. LYRICA [Concomitant]
     Active Substance: PREGABALIN
     Indication: Back pain
     Dosage: FORM STRENGTH: 50 MILLIGRAM, FIRST ADMIN DATE: 2023
     Route: 065
     Dates: end: 20230803
  7. SHAKUYAKUKANZOTO [Concomitant]
     Active Substance: HERBALS
     Indication: Myalgia
     Dosage: 2.5 GRAM, QD
     Route: 048
     Dates: start: 20100421, end: 20230601
  8. CLONAZEPAM [Concomitant]
     Active Substance: CLONAZEPAM
     Indication: Tremor
     Dosage: TIME INTERVAL: 0.33333333 DAYS: FORM STRENGTH: 2 MILLIGRAM, TID
     Route: 048
     Dates: start: 20100602, end: 20230601
  9. CLONAZEPAM [Concomitant]
     Active Substance: CLONAZEPAM
     Indication: Tremor
     Dosage: FORM STRENGTH:6 MILLIGRAM, FIRST ADMIN DATE: 2023
     Route: 065
     Dates: end: 20230803
  10. ENSURE [Concomitant]
     Active Substance: AMINO ACIDS\DEXTROSE\ELECTROLYTES NOS\SOYBEAN OIL\VITAMINS
     Indication: Dysphagia
     Dosage: FORM STRENGTH: 500 MILLILITER
     Route: 048
     Dates: start: 20150418
  11. ENSURE [Concomitant]
     Active Substance: AMINO ACIDS\DEXTROSE\ELECTROLYTES NOS\SOYBEAN OIL\VITAMINS
     Indication: Dysphagia
     Dosage: FORM STRENGTH: 750 MILLILITER
     Route: 048
     Dates: end: 20230601
  12. PREGABALIN [Concomitant]
     Active Substance: PREGABALIN
     Indication: Product used for unknown indication
     Dosage: UNKNOWN
     Route: 048
  13. LOXOPROFEN SODIUM [Concomitant]
     Active Substance: LOXOPROFEN SODIUM
     Indication: Product used for unknown indication
     Dosage: 100 MILLIGRAM, QD
     Route: 062
     Dates: end: 20230601
  14. LOXOPROFEN SODIUM [Concomitant]
     Active Substance: LOXOPROFEN SODIUM
     Indication: Product used for unknown indication
     Dosage: FIRST ADMIN DATE: 2023
     Route: 062
     Dates: end: 20230803
  15. KETOPROFEN [Concomitant]
     Active Substance: KETOPROFEN
     Indication: Product used for unknown indication
     Dosage: UNKNOWN
     Route: 065
  16. TEPRENONE [Concomitant]
     Active Substance: TEPRENONE
     Indication: Product used for unknown indication
     Dosage: UNKNOWN
     Route: 048
  17. VOGLIBOSE [Concomitant]
     Active Substance: VOGLIBOSE
     Indication: Product used for unknown indication
     Dosage: UNKNOWN
     Route: 048
  18. LINAGLIPTIN [Concomitant]
     Active Substance: LINAGLIPTIN
     Indication: Product used for unknown indication
     Dosage: UNKNOWN
     Route: 048
  19. LEVOTHYROXINE SODIUM [Concomitant]
     Active Substance: LEVOTHYROXINE SODIUM
     Indication: Product used for unknown indication
     Dosage: UNKNOWN
     Route: 048
  20. BEPOTASTINE BESYLATE [Concomitant]
     Active Substance: BEPOTASTINE BESYLATE
     Indication: Product used for unknown indication
     Route: 048
  21. VONOPRAZAN FUMARATE [Concomitant]
     Active Substance: VONOPRAZAN FUMARATE
     Indication: Product used for unknown indication
     Dosage: UNKNOWN
     Route: 048

REACTIONS (12)
  - Respiratory disorder [Fatal]
  - Fall [Unknown]
  - Lower limb fracture [Unknown]
  - Dysphagia [Not Recovered/Not Resolved]
  - Rhinitis [Unknown]
  - Sleep apnoea syndrome [Not Recovered/Not Resolved]
  - Fall [Recovered/Resolved]
  - Fall [Unknown]
  - Fall [Recovered/Resolved]
  - Fall [Unknown]
  - Fall [Recovered/Resolved]
  - Fall [Recovering/Resolving]

NARRATIVE: CASE EVENT DATE: 20171101
